FAERS Safety Report 8192854-0 (Version None)
Quarter: 2012Q1

REPORT INFORMATION
  Report Type: 
  Country: None (occurrence: None)
  Receive Date: 20120308
  Receipt Date: 20120228
  Transmission Date: 20120608
  Serious: Yes (Other)
  Sender: FDA-Public Use
  Company Number: CA-JNJFOC-20120214560

PATIENT
  Sex: Female
  Weight: 64 kg

DRUGS (5)
  1. REMICADE [Suspect]
     Indication: CROHN'S DISEASE
     Route: 042
     Dates: start: 20100501
  2. IMURAN [Concomitant]
     Route: 065
  3. CELEXA [Concomitant]
     Route: 065
  4. RABEPRAZOLE SODIUM [Concomitant]
     Route: 065
  5. MESALAMINE [Concomitant]
     Route: 065

REACTIONS (1)
  - CYST [None]
